FAERS Safety Report 8156303-0 (Version None)
Quarter: 2012Q1

REPORT INFORMATION
  Report Type: 
  Country: None (occurrence: None)
  Receive Date: 20120222
  Receipt Date: 20110329
  Transmission Date: 20120608
  Serious: Yes (Other)
  Sender: FDA-Public Use
  Company Number: US-BRISTOL-MYERS SQUIBB COMPANY-15644313

PATIENT
  Age: 49 Year
  Sex: Female

DRUGS (2)
  1. KENALOG [Suspect]
     Dates: start: 20100707
  2. MARCAINE [Suspect]
     Dates: start: 20100707

REACTIONS (1)
  - SKIN ATROPHY [None]
